FAERS Safety Report 6311762-0 (Version None)
Quarter: 2009Q3

REPORT INFORMATION
  Report Type: 
  Country: None (occurrence: None)
  Receive Date: 20090813
  Receipt Date: 20090813
  Transmission Date: 20100115
  Serious: No
  Sender: FDA-Public Use
  Company Number: None

PATIENT
  Age: 60 Year
  Sex: Male
  Weight: 77.3 kg

DRUGS (1)
  1. GEMFIBROZIL [Suspect]
     Dosage: 1 TAB BID PO
     Route: 048
     Dates: start: 20090519, end: 20090701

REACTIONS (1)
  - RHABDOMYOLYSIS [None]
